FAERS Safety Report 6064696-3 (Version None)
Quarter: 2009Q1

REPORT INFORMATION
  Report Type: 
  Country: None (occurrence: None)
  Receive Date: 20090204
  Receipt Date: 20080620
  Transmission Date: 20090719
  Serious: No
  Sender: FDA-Public Use
  Company Number: A0734141A

PATIENT
  Age: 59 Year
  Sex: Male

DRUGS (7)
  1. ARIXTRA [Suspect]
     Indication: DEEP VEIN THROMBOSIS
     Dosage: 10MG PER DAY
     Route: 058
     Dates: start: 20080301
  2. HUMALOG [Concomitant]
  3. LANTUS [Concomitant]
  4. METFORMIN [Concomitant]
  5. LISINOPRIL [Concomitant]
  6. POTASSIUM CHLORIDE [Concomitant]
  7. ASPIRIN [Concomitant]

REACTIONS (1)
  - INJECTION SITE URTICARIA [None]
